FAERS Safety Report 7340657 (Version 7)
Quarter: 2012Q4

REPORT INFORMATION
  Report Type: Report from Study
  Country: US (occurrence: US)
  Receive Date: 20100401
  Receipt Date: 20121109
  Transmission Date: 20130627
  Serious: Yes (Hospitalization)
  Sender: FDA-Public Use
  Company Number: US-JNJFOC-20100308381

PATIENT
  Age: 14 Year
  Sex: Male
  Weight: 47.99 kg

DRUGS (5)
  1. INFLIXIMAB [Suspect]
     Indication: CROHN^S DISEASE
     Route: 042
     Dates: start: 20080514, end: 20081224
  2. THALIDOMIDE [Concomitant]
  3. TYLENOL [Concomitant]
  4. MAALOX [Concomitant]
  5. 6-MERCAPTOPURINE [Concomitant]

REACTIONS (1)
  - Malnutrition [Recovered/Resolved]
